FAERS Safety Report 19321692 (Version 1)
Quarter: 2021Q2

REPORT INFORMATION
  Report Type: Spontaneous
  Country: US (occurrence: US)
  Receive Date: 20210528
  Receipt Date: 20210528
  Transmission Date: 20210717
  Serious: No
  Sender: FDA-Public Use
  Company Number: None

PATIENT
  Age: 71 Year
  Sex: Female
  Weight: 70.76 kg

DRUGS (2)
  1. RITUXAN [Suspect]
     Active Substance: RITUXIMAB
     Indication: GRANULOMATOSIS WITH POLYANGIITIS
     Dosage: ?          OTHER ROUTE:INFUSE  EVERY 4 TO 6 MONTHS?
     Route: 042
     Dates: start: 201911
  2. RITUXAN [Suspect]
     Active Substance: RITUXIMAB
     Dosage: ?          OTHER ROUTE:INFUSE REPEAT EVERY 4?6 WEEKS?
     Dates: start: 201911

REACTIONS (1)
  - Renal impairment [None]
